FAERS Safety Report 18596731 (Version 1)
Quarter: 2020Q4

REPORT INFORMATION
  Report Type: Report from Study
  Country: DE (occurrence: DE)
  Receive Date: 20201209
  Receipt Date: 20201209
  Transmission Date: 20210114
  Serious: Yes (Hospitalization)
  Sender: FDA-Public Use
  Company Number: DE-TAKEDA-2020TUS054335

PATIENT
  Age: 1 Year
  Sex: Male

DRUGS (12)
  1. TEDUGLUTIDE [Suspect]
     Active Substance: TEDUGLUTIDE
     Indication: SHORT-BOWEL SYNDROME
     Route: 065
  2. TEDUGLUTIDE [Suspect]
     Active Substance: TEDUGLUTIDE
     Dosage: 0.5 MILLIGRAM (TED DOSES PER 0.0500 MG/KG, TED DOSES PER WEEK 7)
     Route: 065
     Dates: start: 20201015
  3. MEROPENEM. [Concomitant]
     Active Substance: MEROPENEM
     Dosage: 200 MILLIGRAM, QD
     Route: 042
     Dates: start: 20201014, end: 20201014
  4. VANCOMYCIN [Concomitant]
     Active Substance: VANCOMYCIN
     Indication: ACINETOBACTER SEPSIS
     Dosage: 120 MILLIGRAM, QD
     Route: 042
     Dates: start: 20201013, end: 20201013
  5. TEDUGLUTIDE [Suspect]
     Active Substance: TEDUGLUTIDE
     Indication: SHORT-BOWEL SYNDROME
     Route: 065
  6. TEDUGLUTIDE [Suspect]
     Active Substance: TEDUGLUTIDE
     Dosage: 0.5 MILLIGRAM (TED DOSES PER 0.0500 MG/KG, TED DOSES PER WEEK 7)
     Route: 065
     Dates: start: 20201015
  7. TEDUGLUTIDE [Suspect]
     Active Substance: TEDUGLUTIDE
     Dosage: 0.5 MILLIGRAM (TED DOSES PER 0.0500 MG/KG, TED DOSES PER WEEK 7)
     Route: 065
     Dates: start: 20201015
  8. TEDUGLUTIDE [Suspect]
     Active Substance: TEDUGLUTIDE
     Indication: SHORT-BOWEL SYNDROME
     Route: 065
  9. TEDUGLUTIDE [Suspect]
     Active Substance: TEDUGLUTIDE
     Dosage: 0.5 MILLIGRAM (TED DOSES PER 0.0500 MG/KG, TED DOSES PER WEEK 7)
     Route: 065
     Dates: start: 20201015
  10. MEROPENEM. [Concomitant]
     Active Substance: MEROPENEM
     Dosage: 200 MILLIGRAM, QID
     Route: 042
     Dates: start: 20201013, end: 20201013
  11. TEDUGLUTIDE [Suspect]
     Active Substance: TEDUGLUTIDE
     Indication: SHORT-BOWEL SYNDROME
     Route: 065
  12. MEROPENEM. [Concomitant]
     Active Substance: MEROPENEM
     Indication: ACINETOBACTER SEPSIS
     Dosage: 200 MILLIGRAM, TID
     Route: 042
     Dates: start: 20201002, end: 20201012

REACTIONS (1)
  - Device dislocation [Unknown]

NARRATIVE: CASE EVENT DATE: 20201126
